FAERS Safety Report 4759855-3 (Version None)
Quarter: 2005Q3

REPORT INFORMATION
  Report Type: 
  Country: None (occurrence: None)
  Receive Date: 20050831
  Receipt Date: 20050831
  Transmission Date: 20060218
  Serious: Yes (Hospitalization)
  Sender: FDA-Public Use
  Company Number: None

PATIENT
  Sex: Female
  Weight: 54.8852 kg

DRUGS (10)
  1. ZAROXOLYN [Suspect]
     Indication: OEDEMA PERIPHERAL
     Dosage: 5 MG QAM PO
     Route: 048
     Dates: start: 20050824, end: 20050825
  2. DEMADEX [Concomitant]
  3. COUMADIN [Concomitant]
  4. POTASSIUM CHLORIDE [Concomitant]
  5. ZOCOR [Concomitant]
  6. NEXIUM [Concomitant]
  7. EVISTA [Concomitant]
  8. IMDUR [Concomitant]
  9. TOPROL-XL [Concomitant]
  10. M.V.I. [Concomitant]

REACTIONS (7)
  - BLOOD CHLORIDE DECREASED [None]
  - BLOOD CREATININE INCREASED [None]
  - BLOOD POTASSIUM DECREASED [None]
  - BLOOD SODIUM DECREASED [None]
  - BLOOD UREA INCREASED [None]
  - CARBON DIOXIDE INCREASED [None]
  - OEDEMA PERIPHERAL [None]
